FAERS Safety Report 11150371 (Version 1)
Quarter: 2015Q2

REPORT INFORMATION
  Report Type: Spontaneous
  Country: AU (occurrence: AU)
  Receive Date: 20150531
  Receipt Date: 20150531
  Transmission Date: 20150821
  Serious: Yes (Other)
  Sender: FDA-Public Use
  Company Number: AU-MYLANLABS-2015M1017442

PATIENT

DRUGS (3)
  1. CICLOSPORIN [Suspect]
     Active Substance: CYCLOSPORINE
     Indication: DERMATITIS
     Dosage: 250 MG, BID
     Route: 048
  2. CICLOSPORIN [Suspect]
     Active Substance: CYCLOSPORINE
     Dosage: UNK
  3. AZATHIOPRINE. [Suspect]
     Active Substance: AZATHIOPRINE
     Indication: DERMATITIS
     Dosage: 50MG DAILY FOR 10 DAYS
     Route: 048

REACTIONS (5)
  - Squamous cell carcinoma [Recovering/Resolving]
  - Liver function test abnormal [Unknown]
  - Gingival hypertrophy [Unknown]
  - Renal impairment [Unknown]
  - Neuropathy peripheral [Unknown]
